FAERS Safety Report 9656776 (Version 1)
Quarter: 2013Q4

REPORT INFORMATION
  Report Type: Spontaneous
  Country: GB (occurrence: GB)
  Receive Date: 20131030
  Receipt Date: 20131030
  Transmission Date: 20140711
  Serious: Yes (Other)
  Sender: FDA-Public Use
  Company Number: GB-PFIZER INC-2013302925

PATIENT
  Sex: Female
  Weight: 72 kg

DRUGS (1)
  1. SULFASALAZINE [Suspect]
     Indication: RHEUMATOID ARTHRITIS
     Dosage: UNK
     Route: 048
     Dates: start: 2013, end: 2013

REACTIONS (2)
  - Mouth ulceration [Recovering/Resolving]
  - Rash generalised [Recovering/Resolving]
